FAERS Safety Report 16426363 (Version 1)
Quarter: 2019Q2

REPORT INFORMATION
  Report Type: Spontaneous
  Country: CZ (occurrence: CZ)
  Receive Date: 20190613
  Receipt Date: 20190613
  Transmission Date: 20190711
  Serious: Yes (Other)
  Sender: FDA-Public Use
  Company Number: CZ-JNJFOC-20190609093

PATIENT
  Age: 68 Year
  Sex: Male

DRUGS (4)
  1. VALPROAT [Concomitant]
     Active Substance: VALPROATE SODIUM
     Route: 065
  2. RIVOTRIL [Suspect]
     Active Substance: CLONAZEPAM
     Indication: PRODUCT USED FOR UNKNOWN INDICATION
     Route: 065
     Dates: start: 20180101
  3. DEPAKINE [Concomitant]
     Active Substance: VALPROATE SODIUM
     Route: 065
  4. RISPERDAL [Suspect]
     Active Substance: RISPERIDONE
     Indication: PRODUCT USED FOR UNKNOWN INDICATION
     Dosage: 1/2-0-2
     Route: 065

REACTIONS (77)
  - Cough [Unknown]
  - Dyspnoea [Unknown]
  - Muscular weakness [Unknown]
  - Dry skin [Unknown]
  - Pruritus [Unknown]
  - Tremor [Unknown]
  - Body temperature decreased [Unknown]
  - Depression [Unknown]
  - Nasal congestion [Unknown]
  - Flatulence [Unknown]
  - Tinnitus [Unknown]
  - Hypersensitivity [Unknown]
  - Vision blurred [Unknown]
  - Weight increased [Unknown]
  - Gastric infection [Unknown]
  - Oedema peripheral [Unknown]
  - Swollen tongue [Unknown]
  - Loss of consciousness [Unknown]
  - Rash [Unknown]
  - Disturbance in attention [Unknown]
  - Muscle contractions involuntary [Unknown]
  - Acne [Unknown]
  - Oedema mouth [Unknown]
  - Abdominal pain [Unknown]
  - Constipation [Unknown]
  - Ileus [Unknown]
  - Bone pain [Unknown]
  - Sleep apnoea syndrome [Unknown]
  - Toothache [Unknown]
  - Fatigue [Unknown]
  - Breast enlargement [Unknown]
  - Restlessness [Unknown]
  - Peripheral coldness [Unknown]
  - Blood pressure increased [Unknown]
  - Dystonia [Unknown]
  - Dyspepsia [Unknown]
  - Irritability [Unknown]
  - Dysphonia [Unknown]
  - Musculoskeletal stiffness [Unknown]
  - Anxiety [Unknown]
  - Ear pain [Unknown]
  - Dysarthria [Unknown]
  - Alopecia [Unknown]
  - Sinusitis [Unknown]
  - Heart rate increased [Unknown]
  - Joint stiffness [Unknown]
  - Nasopharyngitis [Unknown]
  - Photophobia [Unknown]
  - Chapped lips [Unknown]
  - Dizziness [Unknown]
  - Dyskinesia [Unknown]
  - Glaucoma [Unknown]
  - Pollakiuria [Unknown]
  - Anal incontinence [Unknown]
  - Hypoaesthesia [Unknown]
  - Insomnia [Unknown]
  - Nervousness [Unknown]
  - Salivary hypersecretion [Unknown]
  - Withdrawal syndrome [Unknown]
  - Pancreatitis [Unknown]
  - Somnolence [Unknown]
  - Lacrimation increased [Unknown]
  - Seizure [Unknown]
  - Muscle tightness [Unknown]
  - Heart rate decreased [Unknown]
  - Skin discolouration [Unknown]
  - Chest pain [Unknown]
  - Depressed level of consciousness [Unknown]
  - Libido decreased [Unknown]
  - Asthenia [Unknown]
  - Atrial fibrillation [Unknown]
  - Eczema [Unknown]
  - Skin hypertrophy [Unknown]
  - Blood pressure decreased [Unknown]
  - Diarrhoea [Unknown]
  - Increased appetite [Unknown]
  - Oropharyngeal pain [Unknown]
